FAERS Safety Report 9472554 (Version 4)
Quarter: 2014Q2

REPORT INFORMATION
  Report Type: Spontaneous
  Country: US (occurrence: US)
  Receive Date: 20130823
  Receipt Date: 20140616
  Transmission Date: 20141212
  Serious: Yes (Hospitalization)
  Sender: FDA-Public Use
  Company Number: US-VIROPHARMA INCORPORATED-20130814CINRY4813

PATIENT
  Age: 24 Year
  Sex: Female
  Weight: 92.97 kg

DRUGS (2)
  1. CINRYZE [Suspect]
     Indication: HEREDITARY ANGIOEDEMA
     Dosage: UNKNOWN
     Route: 042
     Dates: start: 20100524
  2. CINRYZE [Suspect]
     Indication: PROPHYLAXIS

REACTIONS (5)
  - Device related infection [Recovered/Resolved]
  - Medical device complication [Recovered/Resolved]
  - Drug dose omission [Recovered/Resolved]
  - Hereditary angioedema [Recovered/Resolved]
  - Exposure during pregnancy [Recovered/Resolved]
